FAERS Safety Report 12403663 (Version 1)
Quarter: 2016Q2

REPORT INFORMATION
  Report Type: Spontaneous
  Country: US (occurrence: US)
  Receive Date: 20160525
  Receipt Date: 20160525
  Transmission Date: 20160815
  Serious: Yes (Other)
  Sender: FDA-Public Use
  Company Number: US-BEH-2016060525

PATIENT
  Sex: Female
  Weight: 21 kg

DRUGS (4)
  1. HIZENTRA [Suspect]
     Active Substance: HUMAN IMMUNOGLOBULIN G
     Indication: IMMUNE SYSTEM DISORDER
     Route: 058
  2. EPIPEN JR [Concomitant]
     Active Substance: EPINEPHRINE
  3. L-M-X [Concomitant]
  4. LIDOCAINE/PRILOCAINE [Concomitant]
     Active Substance: LIDOCAINE\PRILOCAINE

REACTIONS (3)
  - Splinter [Unknown]
  - Wound infection [Unknown]
  - Sinusitis [Unknown]
